FAERS Safety Report 9896419 (Version 1)
Quarter: 2014Q1

REPORT INFORMATION
  Report Type: Spontaneous
  Country: US (occurrence: US)
  Receive Date: 20140213
  Receipt Date: 20140213
  Transmission Date: 20141002
  Serious: No
  Sender: FDA-Public Use
  Company Number: US-BRISTOL-MYERS SQUIBB COMPANY-19855014

PATIENT
  Age: 41 Year
  Sex: Male
  Weight: 90.7 kg

DRUGS (6)
  1. ABATACEPT SUBQ INJECTION 125MG/ML [Suspect]
     Dosage: 1DF=125MG/ML
     Route: 042
  2. LEVOTHYROXIN [Concomitant]
     Dosage: TABS
  3. PREDNISONE [Concomitant]
     Dosage: TABS
  4. PILOCARPINE [Concomitant]
     Dosage: TABS
  5. NAPRELAN [Concomitant]
     Dosage: TABS CR
  6. XELJANZ [Concomitant]
     Dosage: TABS

REACTIONS (1)
  - Drug ineffective [Unknown]
